APPROVED DRUG PRODUCT: LITHIUM CARBONATE
Active Ingredient: LITHIUM CARBONATE
Strength: 150MG
Dosage Form/Route: CAPSULE;ORAL
Application: A079159 | Product #001 | TE Code: AB
Applicant: ALEMBIC LTD
Approved: Jan 12, 2009 | RLD: No | RS: No | Type: RX